FAERS Safety Report 9526864 (Version 1)
Quarter: 2013Q3

REPORT INFORMATION
  Report Type: Spontaneous
  Country: IT (occurrence: IT)
  Receive Date: 20130916
  Receipt Date: 20130916
  Transmission Date: 20140515
  Serious: Yes (Hospitalization)
  Sender: FDA-Public Use
  Company Number: PHHY2013IT102026

PATIENT
  Age: 83 Year
  Sex: Female

DRUGS (13)
  1. VOLTAREN [Suspect]
     Indication: MYALGIA
     Dosage: 1 DF, PRN
     Dates: start: 20130401, end: 20130901
  2. COUMADIN [Suspect]
     Indication: ATRIAL FIBRILLATION
     Dosage: 1 DF, DAILY
     Route: 048
     Dates: start: 20000101, end: 20130904
  3. SPIDOLA [Suspect]
     Indication: MYALGIA
     Dosage: 400 MG, PRN
     Dates: start: 20130601, end: 20130901
  4. LUVION [Concomitant]
  5. TAPAZOLE [Concomitant]
  6. METFORALMILLE [Concomitant]
  7. DIAMICRON [Concomitant]
  8. DILZENE [Concomitant]
  9. LASIX [Concomitant]
  10. LANOXIN [Concomitant]
  11. PEPTAZOL [Concomitant]
  12. ZYLORIC [Concomitant]
  13. TOTALIP [Concomitant]

REACTIONS (6)
  - International normalised ratio increased [Recovering/Resolving]
  - Asthenia [Recovering/Resolving]
  - Gastrointestinal haemorrhage [Recovering/Resolving]
  - Melaena [Recovering/Resolving]
  - Anaemia [Recovering/Resolving]
  - Dyspnoea exertional [Recovering/Resolving]
